FAERS Safety Report 19476705 (Version 2)
Quarter: 2021Q4

REPORT INFORMATION
  Report Type: Report from Study
  Country: JP (occurrence: JP)
  Receive Date: 20210630
  Receipt Date: 20211015
  Transmission Date: 20220303
  Serious: Yes (Hospitalization)
  Sender: FDA-Public Use
  Company Number: JP-JNJFOC-20210665482

PATIENT
  Sex: Female
  Weight: 49.6 kg

DRUGS (33)
  1. SELEXIPAG [Suspect]
     Active Substance: SELEXIPAG
     Indication: Pulmonary hypertension
     Route: 048
     Dates: start: 20180821, end: 20180821
  2. SELEXIPAG [Suspect]
     Active Substance: SELEXIPAG
     Route: 048
     Dates: start: 20180822, end: 20181022
  3. SELEXIPAG [Suspect]
     Active Substance: SELEXIPAG
     Route: 048
     Dates: start: 20181023, end: 20181023
  4. SELEXIPAG [Suspect]
     Active Substance: SELEXIPAG
     Route: 048
     Dates: start: 20181024, end: 20190304
  5. SELEXIPAG [Suspect]
     Active Substance: SELEXIPAG
     Route: 048
     Dates: start: 20190423
  6. MAGNESIUM OXIDE [Concomitant]
     Active Substance: MAGNESIUM OXIDE
     Indication: Constipation
  7. WARFARIN [Concomitant]
     Active Substance: WARFARIN
     Indication: Pulmonary hypertension
  8. FUROSEMIDE [Concomitant]
     Active Substance: FUROSEMIDE
     Indication: Pulmonary hypertension
  9. MICARDIS [Concomitant]
     Active Substance: TELMISARTAN
     Indication: Hypertension
  10. FEBUXOSTAT [Concomitant]
     Active Substance: FEBUXOSTAT
     Indication: Hyperuricaemia
  11. RABEPRAZOLE SODIUM [Concomitant]
     Active Substance: RABEPRAZOLE SODIUM
     Indication: Chronic gastritis
  12. ATORVASTATIN [Concomitant]
     Active Substance: ATORVASTATIN
     Indication: Dyslipidaemia
  13. SLOW-K [Concomitant]
     Active Substance: POTASSIUM CHLORIDE
     Indication: Hypokalaemia
  14. CALONAL [Concomitant]
     Active Substance: ACETAMINOPHEN
     Indication: Headache
  15. ABILIFY [Concomitant]
     Active Substance: ARIPIPRAZOLE
     Indication: Schizophrenia
  16. ABILIFY [Concomitant]
     Active Substance: ARIPIPRAZOLE
     Dates: start: 20190107
  17. LITHIUM [Concomitant]
     Active Substance: LITHIUM
     Indication: Schizophrenia
  18. PERICIAZINE [Concomitant]
     Active Substance: PERICIAZINE
     Indication: Schizophrenia
     Dates: start: 20180927
  19. QUAZEPAM [Concomitant]
     Active Substance: QUAZEPAM
     Indication: Insomnia
  20. FLUNITRAZEPAM [Concomitant]
     Active Substance: FLUNITRAZEPAM
     Indication: Insomnia
  21. TELMISARTAN [Concomitant]
     Active Substance: TELMISARTAN
     Indication: Hypertension
     Dates: start: 20190423
  22. MIRTAZAPINE [Concomitant]
     Active Substance: MIRTAZAPINE
     Indication: Insomnia
     Dates: start: 20190223
  23. ZOTEPINE [Concomitant]
     Active Substance: ZOTEPINE
     Indication: Insomnia
     Dates: start: 20190727
  24. ADEMPAS [Concomitant]
     Active Substance: RIOCIGUAT
     Indication: Pulmonary hypertension
     Dates: start: 20200819
  25. SAMSCA [Concomitant]
     Active Substance: TOLVAPTAN
     Indication: Pulmonary hypertension
     Dates: start: 20200823
  26. ELIQUIS [Concomitant]
     Active Substance: APIXABAN
     Indication: Pulmonary hypertension
  27. SPIRONOLACTONE [Concomitant]
     Active Substance: SPIRONOLACTONE
     Indication: Pulmonary hypertension
  28. FERROUS CITRATE [Concomitant]
     Active Substance: FERROUS CITRATE
     Indication: Iron deficiency anaemia
     Dates: start: 20190423
  29. NEXIUM [Concomitant]
     Active Substance: ESOMEPRAZOLE MAGNESIUM
     Indication: Chronic gastritis
  30. AMITIZA [Concomitant]
     Active Substance: LUBIPROSTONE
     Indication: Constipation
     Dates: start: 20190402
  31. HERBALS [Concomitant]
     Active Substance: HERBALS
     Indication: Malaise
     Dates: start: 20180320
  32. POTASSIUM ASPARTATE [Concomitant]
     Active Substance: POTASSIUM ASPARTATE
     Indication: Hypokalaemia
     Dates: start: 20190402
  33. HERBALS [Concomitant]
     Active Substance: HERBALS
     Indication: Constipation
     Dates: start: 20191112

REACTIONS (2)
  - Cough [Recovered/Resolved]
  - Chest pain [Recovered/Resolved]

NARRATIVE: CASE EVENT DATE: 20210410
